FAERS Safety Report 9331094 (Version 1)
Quarter: 2013Q2

REPORT INFORMATION
  Report Type: Spontaneous
  Country: FR (occurrence: FR)
  Receive Date: 20130605
  Receipt Date: 20130605
  Transmission Date: 20140414
  Serious: Yes (Other)
  Sender: FDA-Public Use
  Company Number: FR-BRISTOL-MYERS SQUIBB COMPANY-18975920

PATIENT
  Sex: Male

DRUGS (1)
  1. IRBESARTAN [Suspect]

REACTIONS (5)
  - Leukocytoclastic vasculitis [Not Recovered/Not Resolved]
  - Jaundice [Not Recovered/Not Resolved]
  - Joint effusion [Not Recovered/Not Resolved]
  - Epistaxis [Not Recovered/Not Resolved]
  - Eye disorder [Not Recovered/Not Resolved]
